FAERS Safety Report 16744989 (Version 5)
Quarter: 2020Q1

REPORT INFORMATION
  Report Type: Report from Study
  Country: CA (occurrence: CA)
  Receive Date: 20190827
  Receipt Date: 20200319
  Transmission Date: 20200409
  Serious: Yes (Other)
  Sender: FDA-Public Use
  Company Number: CA-UCBSA-2019029489

PATIENT
  Age: 37 Year
  Sex: Female

DRUGS (8)
  1. CERTOLIZUMAB PEGOL AUTOCLICKS [Suspect]
     Active Substance: CERTOLIZUMAB PEGOL
     Dosage: 200 MILLIGRAM, EV 2 WEEKS(QOW)
     Route: 058
     Dates: start: 20190924
  2. CELEBREX [Concomitant]
     Active Substance: CELECOXIB
     Indication: PRODUCT USED FOR UNKNOWN INDICATION
     Dosage: 2 TIMES A DAY
  3. GRAVOL [Suspect]
     Active Substance: DIMENHYDRINATE
     Indication: PRODUCT USED FOR UNKNOWN INDICATION
  4. CERTOLIZUMAB PEGOL AUTOCLICKS [Suspect]
     Active Substance: CERTOLIZUMAB PEGOL
     Dosage: 400 MILLIGRAM, EV 4 WEEKS
     Route: 058
     Dates: start: 20190813, end: 20190910
  5. DEPO-MEDROL [Concomitant]
     Active Substance: METHYLPREDNISOLONE ACETATE
     Indication: PRODUCT USED FOR UNKNOWN INDICATION
  6. CERTOLIZUMAB PEGOL AUTOCLICKS [Suspect]
     Active Substance: CERTOLIZUMAB PEGOL
     Indication: RHEUMATOID ARTHRITIS
     Dosage: 400 MILLIGRAM, EV 2 WEEKS(QOW)
     Route: 058
     Dates: start: 20190618, end: 20190716
  7. AMITRIPTYLINE [Suspect]
     Active Substance: AMITRIPTYLINE
     Indication: POOR QUALITY SLEEP
  8. TYLENOL [Concomitant]
     Active Substance: ACETAMINOPHEN
     Indication: PRODUCT USED FOR UNKNOWN INDICATION
     Dosage: UNK

REACTIONS (15)
  - Chills [Recovering/Resolving]
  - Therapeutic response shortened [Unknown]
  - Erythema [Unknown]
  - Nasopharyngitis [Unknown]
  - Injection site haemorrhage [Unknown]
  - Rheumatoid arthritis [Not Recovered/Not Resolved]
  - Injection site discolouration [Unknown]
  - Headache [Recovering/Resolving]
  - Pruritus [Unknown]
  - Somnolence [Unknown]
  - Dry skin [Unknown]
  - Injection site bruising [Unknown]
  - Injection site swelling [Unknown]
  - Pneumonia [Not Recovered/Not Resolved]
  - Influenza [Recovering/Resolving]

NARRATIVE: CASE EVENT DATE: 2019
